FAERS Safety Report 24743168 (Version 1)
Quarter: 2024Q4

REPORT INFORMATION
  Report Type: Spontaneous
  Country: US (occurrence: None)
  Receive Date: 20241217
  Receipt Date: 20241217
  Transmission Date: 20250115
  Serious: Yes (Death)
  Sender: Public
  Company Number: None

PATIENT
  Age: 56 Year
  Sex: Female

DRUGS (1)
  1. OCTREOTIDE ACETATE [Suspect]
     Active Substance: OCTREOTIDE ACETATE
     Indication: Short-bowel syndrome
     Dosage: OTHER STRENGTH : 100MCG/ML;?FREQUENCY : TWICE A DAY;?

REACTIONS (3)
  - Pulmonary thrombosis [None]
  - Cardiac arrest [None]
  - Brain death [None]

NARRATIVE: CASE EVENT DATE: 20241216
